FAERS Safety Report 9571390 (Version 2)
Quarter: 2013Q4

REPORT INFORMATION
  Report Type: Spontaneous
  Country: US (occurrence: US)
  Receive Date: 20131001
  Receipt Date: 20131113
  Transmission Date: 20140711
  Serious: No
  Sender: FDA-Public Use
  Company Number: US-009507513-1309USA010920

PATIENT
  Age: 55 Year
  Sex: Male

DRUGS (2)
  1. PEGINTRON [Suspect]
     Indication: HEPATITIS C
     Dosage: REDIPEN
     Dates: start: 20130913
  2. REBETOL [Suspect]
     Indication: HEPATITIS C
     Dosage: UNK
     Route: 048
     Dates: start: 20130913

REACTIONS (18)
  - Hepatic pain [Unknown]
  - Back pain [Unknown]
  - Pollakiuria [Unknown]
  - Insomnia [Unknown]
  - Vomiting [Unknown]
  - Body temperature increased [Unknown]
  - Hypoaesthesia [Unknown]
  - Peripheral coldness [Unknown]
  - Decreased appetite [Unknown]
  - Injection site erythema [Recovered/Resolved]
  - Injection site reaction [Unknown]
  - Pyrexia [Unknown]
  - Feeling abnormal [Unknown]
  - Hypoaesthesia [Unknown]
  - Insomnia [Unknown]
  - Feeling abnormal [Unknown]
  - Hyperhidrosis [Unknown]
  - Pollakiuria [Unknown]
